FAERS Safety Report 16669198 (Version 1)
Quarter: 2019Q3

REPORT INFORMATION
  Report Type: Report from Study
  Country: IT (occurrence: IT)
  Receive Date: 20190805
  Receipt Date: 20190805
  Transmission Date: 20191004
  Serious: Yes (Hospitalization)
  Sender: FDA-Public Use
  Company Number: IT-DSJP-DSE-2019-130152

PATIENT

DRUGS (6)
  1. TORVAST [Concomitant]
     Active Substance: ATORVASTATIN
     Indication: PRODUCT USED FOR UNKNOWN INDICATION
     Dosage: UNK
  2. PEPTAZOLE                          /01159001/ [Concomitant]
     Indication: PRODUCT USED FOR UNKNOWN INDICATION
     Dosage: UNK
  3. TRIATEC                            /00885601/ [Suspect]
     Active Substance: RAMIPRIL
     Indication: HYPERTENSION
     Dosage: 1 DF, QD
     Route: 048
  4. OLPREZIDE [Suspect]
     Active Substance: HYDROCHLOROTHIAZIDE\OLMESARTAN MEDOXOMIL
     Indication: HYPERTENSION
     Dosage: 1 DF, QD
     Route: 048
  5. IVABRADINE [Concomitant]
     Active Substance: IVABRADINE
     Indication: PRODUCT USED FOR UNKNOWN INDICATION
     Dosage: UNK
  6. DUOPLAVIN [Concomitant]
     Active Substance: ASPIRIN\CLOPIDOGREL
     Indication: PRODUCT USED FOR UNKNOWN INDICATION
     Dosage: UNK

REACTIONS (2)
  - Vomiting [Recovering/Resolving]
  - Hypertensive crisis [Recovering/Resolving]

NARRATIVE: CASE EVENT DATE: 20190624
